FAERS Safety Report 5464701-9 (Version None)
Quarter: 2007Q3

REPORT INFORMATION
  Report Type: 
  Country: None (occurrence: None)
  Receive Date: 20070820
  Receipt Date: 20070711
  Transmission Date: 20080115
  Serious: No
  Sender: FDA-Public Use
  Company Number: TPA2007A01506

PATIENT

DRUGS (3)
  1. ROZEREM [Suspect]
     Dosage: 16 MG, HS, PER ORAL
     Route: 048
  2. LORAZEPAM [Concomitant]
  3. NEURONTIN [Concomitant]

REACTIONS (3)
  - ANXIETY [None]
  - DEPERSONALISATION [None]
  - OVERDOSE [None]
